FAERS Safety Report 7475194-4 (Version None)
Quarter: 2011Q2

REPORT INFORMATION
  Report Type: 
  Country: None (occurrence: None)
  Receive Date: 20110512
  Receipt Date: 20110428
  Transmission Date: 20111010
  Serious: Yes (Other)
  Sender: FDA-Public Use
  Company Number: US-CELGENEUS-163-21880-11040225

PATIENT
  Sex: Female
  Weight: 79.45 kg

DRUGS (15)
  1. PERCOCET [Concomitant]
     Indication: PAIN
     Dosage: 5-325MG
     Route: 048
     Dates: start: 20060101
  2. SEROQUEL [Concomitant]
     Dosage: 100 MILLIGRAM
     Route: 048
     Dates: start: 20100101
  3. SYNTHROID [Concomitant]
     Dosage: 100 MICROGRAM
     Route: 048
     Dates: start: 19600101
  4. CELEXA [Concomitant]
     Dosage: 40 MILLIGRAM
     Route: 048
     Dates: start: 20080101
  5. SENNA-MINT WAF [Concomitant]
     Route: 065
     Dates: start: 20080101
  6. DULCOLAX [Concomitant]
     Route: 048
     Dates: start: 20101001
  7. REVLIMID [Suspect]
     Indication: MULTIPLE MYELOMA
     Dosage: 10 MILLIGRAM
     Route: 048
     Dates: start: 20101009
  8. AMBIEN [Concomitant]
     Dosage: 10 MILLIGRAM
     Route: 048
     Dates: start: 20070101
  9. MAXZIDE [Concomitant]
     Dosage: 75-50MG
     Route: 048
  10. DEXAMETHASONE [Concomitant]
     Dosage: 40 MILLIGRAM
     Route: 048
     Dates: start: 20101009, end: 20110311
  11. DEXAMETHASONE [Concomitant]
     Dosage: 20 MILLIGRAM
     Route: 048
     Dates: start: 20110301
  12. DIOVAN [Concomitant]
     Dosage: 40 MILLIGRAM
     Route: 048
     Dates: start: 20070101
  13. FISH OIL [Concomitant]
     Dosage: 300-1000MG
     Route: 048
     Dates: start: 20050101
  14. AREDIA [Concomitant]
     Route: 051
     Dates: start: 20101011
  15. LACTATED RINGER'S [Concomitant]
     Route: 051
     Dates: start: 20101207

REACTIONS (5)
  - CONTUSION [None]
  - HAEMOGLOBIN DECREASED [None]
  - ORAL HERPES [None]
  - INTERVERTEBRAL DISC PROTRUSION [None]
  - BLOOD CREATININE INCREASED [None]
